FAERS Safety Report 8966962 (Version 1)
Quarter: 2012Q4

REPORT INFORMATION
  Report Type: 
  Country: SE (occurrence: SE)
  Receive Date: 20121217
  Receipt Date: 20121217
  Transmission Date: 20130627
  Serious: Yes (Other)
  Sender: FDA-Public Use
  Company Number: SE-ASTRAZENECA-2012SE92388

PATIENT
  Age: 24643 Day
  Sex: Female

DRUGS (1)
  1. PLENDIL [Suspect]
     Indication: ESSENTIAL HYPERTENSION
     Route: 048
     Dates: end: 20120705

REACTIONS (1)
  - Ileus [Unknown]
